FAERS Safety Report 17959900 (Version 1)
Quarter: 2020Q2

REPORT INFORMATION
  Report Type: Spontaneous
  Country: US (occurrence: US)
  Receive Date: 20200630
  Receipt Date: 20200630
  Transmission Date: 20200714
  Serious: Yes (Other)
  Sender: FDA-Public Use
  Company Number: US-ALKEM LABORATORIES LIMITED-US-ALKEM-2020-00852

PATIENT
  Sex: Female

DRUGS (4)
  1. CLOBAZAM. [Suspect]
     Active Substance: CLOBAZAM
     Indication: ANXIETY
     Dosage: 20 MILLIGRAM, OD
     Route: 065
  2. CLOBAZAM. [Suspect]
     Active Substance: CLOBAZAM
     Indication: STRESS
     Dosage: 10 MG IN AM AND 10 MG IN PM
     Route: 065
  3. BENICAR [Concomitant]
     Active Substance: OLMESARTAN MEDOXOMIL
     Indication: PRODUCT USED FOR UNKNOWN INDICATION
     Dosage: UNK
     Route: 065
  4. CLOBAZAM. [Suspect]
     Active Substance: CLOBAZAM
     Dosage: 5 MG IN AM AND 5 MG IN PM
     Route: 065

REACTIONS (13)
  - Palpitations [Recovered/Resolved]
  - Dry skin [Recovered/Resolved]
  - Blister [Recovered/Resolved]
  - Hallucination, tactile [Recovered/Resolved]
  - Feeling abnormal [Recovered/Resolved]
  - Weight decreased [Recovered/Resolved]
  - Hypersensitivity [Recovered/Resolved]
  - Abdominal discomfort [Recovered/Resolved]
  - Glycosylated haemoglobin increased [Recovered/Resolved]
  - Alopecia [Recovered/Resolved]
  - Hallucination, visual [Recovered/Resolved]
  - Fear [Recovered/Resolved]
  - Scab [Recovered/Resolved]
